FAERS Safety Report 5903233-8 (Version None)
Quarter: 2008Q3

REPORT INFORMATION
  Report Type: 
  Country: None (occurrence: None)
  Receive Date: 20080930
  Receipt Date: 20080919
  Transmission Date: 20090109
  Serious: Yes (Disabling, Other)
  Sender: FDA-Public Use
  Company Number: FR-JNJFOC-20080706876

PATIENT
  Age: 56 Year
  Sex: Female
  Weight: 75 kg

DRUGS (3)
  1. REMICADE [Suspect]
     Dosage: 5TH INFLIXIMAB INFUSION
     Route: 042
  2. REMICADE [Suspect]
     Indication: COLITIS ULCERATIVE
     Dosage: TOTAL OF 4 INFUSIONS
     Route: 042
  3. PENTASA [Concomitant]
     Indication: COLITIS ULCERATIVE

REACTIONS (2)
  - BACK PAIN [None]
  - SCIATICA [None]
